FAERS Safety Report 4855050-8 (Version None)
Quarter: 2005Q4

REPORT INFORMATION
  Report Type: 
  Country: None (occurrence: None)
  Receive Date: 20051125
  Receipt Date: 20041018
  Transmission Date: 20060501
  Serious: Yes (Hospitalization)
  Sender: FDA-Public Use
  Company Number: US-JNJFOC-20041005830

PATIENT
  Age: 52 Year
  Sex: Female

DRUGS (8)
  1. LEVAQUIN [Suspect]
  2. BACTRIM [Suspect]
  3. LIPITOR [Concomitant]
  4. INSULIN [Concomitant]
  5. SYNTHROID [Concomitant]
  6. PREMARIN [Concomitant]
  7. CELEXA [Concomitant]
  8. ACETAMINOPHEN [Concomitant]

REACTIONS (3)
  - HEPATIC FAILURE [None]
  - NEUTROPENIA [None]
  - RASH [None]
